FAERS Safety Report 16294261 (Version 2)
Quarter: 2019Q2

REPORT INFORMATION
  Report Type: Spontaneous
  Country: IT (occurrence: IT)
  Receive Date: 20190509
  Receipt Date: 20190625
  Transmission Date: 20190711
  Serious: Yes (Hospitalization)
  Sender: FDA-Public Use
  Company Number: IT-009507513-1905ITA002641

PATIENT
  Age: 83 Year
  Sex: Female

DRUGS (7)
  1. REMERON [Suspect]
     Active Substance: MIRTAZAPINE
     Indication: DEPRESSION
     Dosage: 30 MILLIGRAM, QD
     Route: 048
     Dates: start: 20190131, end: 20190423
  2. XADAGO [Suspect]
     Active Substance: SAFINAMIDE MESYLATE
     Indication: PARKINSON^S DISEASE
     Dosage: 50 MILLIGRAM, QD
     Route: 048
     Dates: start: 20180101, end: 20190423
  3. CARDIOASPIRIN [Concomitant]
     Active Substance: ASPIRIN
  4. SINEMET [Concomitant]
     Active Substance: CARBIDOPA\LEVODOPA
  5. TRIATEC (RAMIPRIL) [Concomitant]
     Active Substance: RAMIPRIL
  6. OMEPRAZOLE. [Concomitant]
     Active Substance: OMEPRAZOLE
  7. TALOFEN [Concomitant]
     Active Substance: PROMAZINE HYDROCHLORIDE

REACTIONS (3)
  - Agitation [Recovering/Resolving]
  - Cognitive disorder [Recovering/Resolving]
  - Extrapyramidal disorder [Recovering/Resolving]

NARRATIVE: CASE EVENT DATE: 20190423
